FAERS Safety Report 20789397 (Version 1)
Quarter: 2022Q2

REPORT INFORMATION
  Report Type: Spontaneous
  Country: US (occurrence: None)
  Receive Date: 20220504
  Receipt Date: 20220504
  Transmission Date: 20220721
  Serious: Yes (Hospitalization)
  Sender: FDA-Public Use
  Company Number: None

PATIENT
  Sex: Male

DRUGS (2)
  1. MIRTAZAPINE [Suspect]
     Active Substance: MIRTAZAPINE
     Indication: Drug therapy
     Dosage: 30 MG DAILY BY MOUTH??
     Route: 048
     Dates: start: 202103
  2. FOLIC ACID [Suspect]
     Active Substance: FOLIC ACID
     Dosage: 1 MG DAILY BY MOUTH?
     Route: 048
     Dates: start: 202104

REACTIONS (4)
  - Impaired healing [None]
  - Wound complication [None]
  - Urethral cancer [None]
  - Pulmonary mass [None]
